FAERS Safety Report 17112930 (Version 1)
Quarter: 2019Q4

REPORT INFORMATION
  Report Type: Spontaneous
  Country: US (occurrence: US)
  Receive Date: 20191204
  Receipt Date: 20191204
  Transmission Date: 20200122
  Serious: No
  Sender: FDA-Public Use
  Company Number: US-GE HEALTHCARE LIFE SCIENCES-2019CSU003828

PATIENT
  Age: 38 Year
  Sex: Female
  Weight: 74.8 kg

DRUGS (8)
  1. VISIPAQUE [Suspect]
     Active Substance: IODIXANOL
     Indication: ANGIOGRAM CEREBRAL
     Dosage: UNK
     Route: 042
     Dates: start: 20190724, end: 20190724
  2. EXCEDRIN [Concomitant]
     Active Substance: ACETAMINOPHEN\ASPIRIN\CAFFEINE
     Indication: MIGRAINE
  3. VISIPAQUE [Suspect]
     Active Substance: IODIXANOL
     Indication: VERTIGO
  4. VISIPAQUE [Suspect]
     Active Substance: IODIXANOL
     Indication: ANGIOGRAM
  5. VISIPAQUE [Suspect]
     Active Substance: IODIXANOL
     Indication: HYPOAESTHESIA
  6. VISIPAQUE [Suspect]
     Active Substance: IODIXANOL
     Indication: ANGIOGRAM
     Dosage: UNK UNK, SINGLE
     Route: 042
     Dates: start: 20190724, end: 20190724
  7. ATIVAN [Concomitant]
     Active Substance: LORAZEPAM
     Dosage: 0.25 MG TID, AS NEEDED
  8. IBUPROFEN. [Concomitant]
     Active Substance: IBUPROFEN

REACTIONS (3)
  - Chest pain [Recovering/Resolving]
  - Throat irritation [Recovered/Resolved]
  - Paraesthesia [Recovering/Resolving]

NARRATIVE: CASE EVENT DATE: 20190724
